FAERS Safety Report 12029037 (Version 2)
Quarter: 2016Q2

REPORT INFORMATION
  Report Type: Spontaneous
  Country: US (occurrence: US)
  Receive Date: 20160207
  Receipt Date: 20160414
  Transmission Date: 20160815
  Serious: No
  Sender: FDA-Public Use
  Company Number: US-ASTRAZENECA-2016SE09724

PATIENT
  Age: 882 Month
  Sex: Female
  Weight: 68.9 kg

DRUGS (8)
  1. XOPENEX [Concomitant]
     Active Substance: LEVALBUTEROL HYDROCHLORIDE
     Indication: EMPHYSEMA
     Dosage: EVERY 12 HOURS,1 PUFF IN THE MORNING AND 2 PUFFS IN THE EVENING
     Route: 055
  2. ADELACTONE [Concomitant]
     Indication: PERIPHERAL SWELLING
     Route: 048
  3. SPIRIVA [Concomitant]
     Active Substance: TIOTROPIUM BROMIDE MONOHYDRATE
     Indication: EMPHYSEMA
     Route: 055
  4. VALIUM [Concomitant]
     Active Substance: DIAZEPAM
     Indication: ANXIETY
     Route: 048
  5. SYMBICORT [Suspect]
     Active Substance: BUDESONIDE\FORMOTEROL FUMARATE DIHYDRATE
     Indication: EMPHYSEMA
     Dosage: 160/4.5 MCG TWO PUFFS, EVERY 12 HOURS
     Route: 055
     Dates: start: 20160113
  6. OXYGEN. [Concomitant]
     Active Substance: OXYGEN
     Indication: EMPHYSEMA
     Dosage: CONTINUOUSLY
     Route: 045
  7. SYMBICORT [Suspect]
     Active Substance: BUDESONIDE\FORMOTEROL FUMARATE DIHYDRATE
     Indication: EMPHYSEMA
     Dosage: USED ONE PUFF, UNKNOWN
     Route: 055
  8. LOPRESSOR [Concomitant]
     Active Substance: METOPROLOL TARTRATE
     Route: 048

REACTIONS (4)
  - Drug ineffective [Unknown]
  - Dyspnoea [Unknown]
  - Feeling abnormal [Unknown]
  - Product quality issue [Unknown]

NARRATIVE: CASE EVENT DATE: 201601
